FAERS Safety Report 10031896 (Version 3)
Quarter: 2014Q2

REPORT INFORMATION
  Report Type: Spontaneous
  Country: US (occurrence: US)
  Receive Date: 20140324
  Receipt Date: 20140422
  Transmission Date: 20141212
  Serious: Yes (Hospitalization)
  Sender: FDA-Public Use
  Company Number: US-B.I. PHARMACEUTICALS,INC./RIDGEFIELD-2014-BI-11773BP

PATIENT
  Age: 63 Year
  Sex: Female

DRUGS (13)
  1. SPIRIVA [Suspect]
     Indication: CHRONIC OBSTRUCTIVE PULMONARY DISEASE
     Dosage: 18 MCG
     Route: 055
     Dates: start: 2007, end: 2012
  2. SPIRIVA [Suspect]
     Dosage: 18 MCG
     Route: 055
     Dates: start: 2013
  3. IMDUR [Concomitant]
     Dosage: 60 MG
     Route: 048
  4. ZESTRIL [Concomitant]
     Dosage: 2.5 MG
     Route: 048
  5. PLAVIX [Concomitant]
     Dosage: 75 MG
     Route: 048
  6. BENTYL [Concomitant]
     Dosage: 40 MG
     Route: 048
  7. ATENOLOL [Concomitant]
     Dosage: 50 MG
     Route: 048
  8. CELEXA [Concomitant]
     Dosage: 20 MG
     Route: 048
  9. PRAVACHOL [Concomitant]
     Dosage: 80 MG
     Route: 048
  10. DEXILANT [Concomitant]
     Dosage: 30 MG
     Route: 048
  11. NEURONTIN [Concomitant]
     Dosage: 900 MG
     Route: 048
  12. ESTRADIOL [Concomitant]
     Route: 048
  13. ASPIRIN [Concomitant]
     Dosage: 81 MG
     Route: 048

REACTIONS (7)
  - Myocardial infarction [Recovered/Resolved]
  - Dyspnoea [Recovered/Resolved]
  - Dyspnoea [Recovered/Resolved]
  - Dyspnoea [Recovered/Resolved]
  - Cough [Recovered/Resolved]
  - Product quality issue [Recovered/Resolved]
  - Product quality issue [Recovered/Resolved]
